FAERS Safety Report 7921665 (Version 5)
Quarter: 2016Q4

REPORT INFORMATION
  Report Type: Spontaneous
  Country: US (occurrence: US)
  Receive Date: 20110429
  Receipt Date: 20161020
  Transmission Date: 20170207
  Serious: Yes (Death, Hospitalization, Other)
  Sender: FDA-Public Use
  Company Number: US-ASTRAZENECA-2010SE49903

PATIENT
  Age: 72 Year
  Sex: Male

DRUGS (4)
  1. LASIX [Concomitant]
     Active Substance: FUROSEMIDE
  2. NEXIUM [Suspect]
     Active Substance: ESOMEPRAZOLE MAGNESIUM
     Route: 048
  3. 2 DIFFERENT HEART MEDICATION [Concomitant]
     Indication: CARDIAC DISORDER
  4. CRESTOR [Suspect]
     Active Substance: ROSUVASTATIN CALCIUM
     Route: 048

REACTIONS (10)
  - Renal impairment [Fatal]
  - Weight increased [Unknown]
  - Coronary artery occlusion [Fatal]
  - Chronic obstructive pulmonary disease [Fatal]
  - Carotid artery occlusion [Fatal]
  - Cardiac disorder [Unknown]
  - Arrhythmia [Unknown]
  - Dyspepsia [Unknown]
  - Malaise [Unknown]
  - Drug dose omission [Unknown]
